FAERS Safety Report 12161372 (Version 2)
Quarter: 2016Q2

REPORT INFORMATION
  Report Type: Report from Study
  Country: US (occurrence: US)
  Receive Date: 20160308
  Receipt Date: 20160418
  Transmission Date: 20160815
  Serious: Yes (Other)
  Sender: FDA-Public Use
  Company Number: US-BIOGEN-2016BI00196272

PATIENT
  Age: 56 Year
  Sex: Female

DRUGS (1)
  1. PLEGRIDY [Suspect]
     Active Substance: PEGINTERFERON BETA-1A
     Indication: MULTIPLE SCLEROSIS
     Route: 058
     Dates: start: 20160210

REACTIONS (8)
  - Haemorrhage [Recovered/Resolved]
  - Blood potassium decreased [Recovered/Resolved]
  - Epistaxis [Recovered/Resolved]
  - Influenza like illness [Recovered/Resolved]
  - Injection site erythema [Not Recovered/Not Resolved]
  - Haematemesis [Recovered/Resolved]
  - Injection site pruritus [Not Recovered/Not Resolved]
  - Sneezing [Recovered/Resolved]

NARRATIVE: CASE EVENT DATE: 201602
